FAERS Safety Report 5069441-6 (Version None)
Quarter: 2006Q3

REPORT INFORMATION
  Report Type: 
  Country: None (occurrence: None)
  Receive Date: 20060802
  Receipt Date: 20060802
  Transmission Date: 20061208
  Serious: Yes (Hospitalization)
  Sender: FDA-Public Use
  Company Number: None

PATIENT
  Age: 51 Year
  Sex: Male
  Weight: 109 kg

DRUGS (1)
  1. ENOXAPARIN SODIUM [Suspect]
     Dosage: SQ BID
     Route: 058
     Dates: start: 20060216, end: 20060226

REACTIONS (5)
  - DRUG CLEARANCE DECREASED [None]
  - HAEMATOMA [None]
  - MUSCLE HAEMORRHAGE [None]
  - RENAL FAILURE ACUTE [None]
  - RHABDOMYOLYSIS [None]
